FAERS Safety Report 13854373 (Version 2)
Quarter: 2017Q4

REPORT INFORMATION
  Report Type: Spontaneous
  Country: US (occurrence: US)
  Receive Date: 20170809
  Receipt Date: 20171004
  Transmission Date: 20180320
  Serious: Yes (Other)
  Sender: FDA-Public Use
  Company Number: US-ALLERGAN-1733314US

PATIENT
  Age: 55 Year
  Sex: Female

DRUGS (3)
  1. FLOLAN [Suspect]
     Active Substance: EPOPROSTENOL SODIUM
     Indication: PULMONARY ARTERIAL HYPERTENSION
     Dosage: 62.5 DF, CONTINUOSLY
     Dates: start: 20060725
  2. NORCO [Suspect]
     Active Substance: ACETAMINOPHEN\HYDROCODONE BITARTRATE
     Indication: PRODUCT USED FOR UNKNOWN INDICATION
     Route: 065
  3. FLOLAN [Suspect]
     Active Substance: EPOPROSTENOL SODIUM
     Indication: PULMONARY ARTERIAL HYPERTENSION

REACTIONS (16)
  - Haematoma [Unknown]
  - Hypotension [Unknown]
  - Weight fluctuation [Unknown]
  - Visual impairment [Unknown]
  - Hypersomnia [Unknown]
  - Hypoacusis [Unknown]
  - Balance disorder [Unknown]
  - Pulmonary arterial pressure abnormal [Unknown]
  - Plasma cell myeloma [Unknown]
  - Injury [Unknown]
  - Pain [Unknown]
  - Depressed level of consciousness [Unknown]
  - Contusion [Unknown]
  - Pericardial effusion [Unknown]
  - Fall [Unknown]
  - Nausea [Unknown]

NARRATIVE: CASE EVENT DATE: 201707
